FAERS Safety Report 4603306-6 (Version None)
Quarter: 2005Q2

REPORT INFORMATION
  Report Type: 
  Country: None (occurrence: None)
  Receive Date: 20050223
  Receipt Date: 20040128
  Transmission Date: 20051028
  Serious: Yes (Other)
  Sender: FDA-Public Use
  Company Number: WAES 0401USA02055

PATIENT
  Sex: Female

DRUGS (1)
  1. ALDOMET [Suspect]
     Dosage: PO
     Route: 048

REACTIONS (1)
  - PANCREATITIS [None]
